FAERS Safety Report 8392374-4 (Version None)
Quarter: 2012Q2

REPORT INFORMATION
  Report Type: 
  Country: None (occurrence: None)
  Receive Date: 20120529
  Receipt Date: 20120514
  Transmission Date: 20120825
  Serious: Yes (Other)
  Sender: FDA-Public Use
  Company Number: JP-ROCHE-1069797

PATIENT

DRUGS (12)
  1. PEGASYS [Suspect]
     Indication: HEPATITIS B
  2. ROFERON-A [Suspect]
     Indication: RENAL CELL CARCINOMA
  3. PEGASYS [Suspect]
     Indication: CHRONIC MYELOID LEUKAEMIA
  4. ROFERON-A [Suspect]
     Indication: HEPATITIS B
  5. ROFERON-A [Suspect]
     Indication: CHRONIC MYELOID LEUKAEMIA
  6. ROFERON-A [Suspect]
     Indication: HEPATITIS C
  7. COPEGUS [Suspect]
     Indication: HEPATITIS B
  8. COPEGUS [Suspect]
     Indication: RENAL CELL CARCINOMA
  9. PEGASYS [Suspect]
     Indication: RENAL CELL CARCINOMA
  10. PEGASYS [Suspect]
     Indication: HEPATITIS C
  11. COPEGUS [Suspect]
  12. COPEGUS [Suspect]
     Indication: CHRONIC MYELOID LEUKAEMIA

REACTIONS (1)
  - TYPE 1 DIABETES MELLITUS [None]
